FAERS Safety Report 5046501-7 (Version None)
Quarter: 2006Q3

REPORT INFORMATION
  Report Type: 
  Country: None (occurrence: None)
  Receive Date: 20060707
  Receipt Date: 20060707
  Transmission Date: 20061208
  Serious: Yes (Disabling)
  Sender: FDA-Public Use
  Company Number: None

PATIENT
  Age: 26 Year
  Sex: Male
  Weight: 63.5 kg

DRUGS (1)
  1. OMNISCAN [Suspect]
     Indication: NEPHROGENIC FIBROSING DERMOPATHY
     Dosage: 40 CC   ONCE   IV BOLUS   (ONE TIME INJECTION)
     Route: 040
     Dates: start: 20050919, end: 20050919

REACTIONS (5)
  - ARTHRALGIA [None]
  - ERYTHEMA [None]
  - OEDEMA PERIPHERAL [None]
  - SKIN FIBROSIS [None]
  - SKIN HYPERTROPHY [None]
